FAERS Safety Report 6116787-6 (Version None)
Quarter: 2009Q1

REPORT INFORMATION
  Report Type: 
  Country: None (occurrence: None)
  Receive Date: 20090314
  Receipt Date: 20081231
  Transmission Date: 20090719
  Serious: No
  Sender: FDA-Public Use
  Company Number: US-ABBOTT-08P-163-0494950-00

PATIENT
  Sex: Female
  Weight: 69.916 kg

DRUGS (3)
  1. HUMIRA [Suspect]
     Indication: PSORIATIC ARTHROPATHY
     Route: 058
     Dates: start: 20080801
  2. PREDNISONE [Concomitant]
     Indication: PSORIATIC ARTHROPATHY
  3. WELLBUTRIN XL [Concomitant]
     Indication: DEPRESSION

REACTIONS (3)
  - INJECTION SITE ERYTHEMA [None]
  - INJECTION SITE IRRITATION [None]
  - INJECTION SITE SWELLING [None]
